FAERS Safety Report 24251262 (Version 1)
Quarter: 2024Q3

REPORT INFORMATION
  Report Type: Report from Study
  Country: DE (occurrence: DE)
  Receive Date: 20240826
  Receipt Date: 20240826
  Transmission Date: 20241017
  Serious: Yes (Hospitalization)
  Sender: ABBVIE
  Company Number: DE-ABBVIE-5721922

PATIENT
  Age: 76 Year
  Sex: Male

DRUGS (5)
  1. CARBIDOPA\LEVODOPA [Suspect]
     Active Substance: CARBIDOPA\LEVODOPA
     Indication: Parkinson^s disease
     Route: 050
     Dates: start: 20240820
  2. CARBIDOPA\LEVODOPA [Suspect]
     Active Substance: CARBIDOPA\LEVODOPA
  3. FOSCARBIDOPA\FOSLEVODOPA [Suspect]
     Active Substance: FOSCARBIDOPA\FOSLEVODOPA
     Indication: Parkinson^s disease
     Dosage: CRN: 0.42 ML/H; CR: 0.60 ML/H; CRH: 0.64 ML/H; ED: 0.20 ML
     Route: 058
     Dates: start: 20240116, end: 2024
  4. FOSCARBIDOPA\FOSLEVODOPA [Suspect]
     Active Substance: FOSCARBIDOPA\FOSLEVODOPA
     Indication: Parkinson^s disease
     Dosage: CR 4.2 ML/H, CRN 3.4 ML/H, ED 0.0 ML CRN: 0.42 ML/H; CR: 0.50 ML/H; CRH: 0.56 ML/H; ED: 0.20 ML
     Route: 058
     Dates: start: 2024, end: 20240820
  5. FUSIDATE SODIUM [Concomitant]
     Active Substance: FUSIDATE SODIUM
     Indication: Infusion site induration

REACTIONS (20)
  - Infusion site abscess [Not Recovered/Not Resolved]
  - Infusion site erythema [Not Recovered/Not Resolved]
  - Infusion site inflammation [Not Recovered/Not Resolved]
  - Infusion site erythema [Recovering/Resolving]
  - Infusion site inflammation [Recovering/Resolving]
  - Infusion site pain [Recovering/Resolving]
  - Infusion site induration [Recovering/Resolving]
  - Infusion site inflammation [Not Recovered/Not Resolved]
  - Infusion site inflammation [Not Recovered/Not Resolved]
  - Enteral nutrition [Not Recovered/Not Resolved]
  - General physical health deterioration [Recovering/Resolving]
  - Infusion site inflammation [Not Recovered/Not Resolved]
  - Infusion site pain [Not Recovered/Not Resolved]
  - Cachexia [Not Recovered/Not Resolved]
  - Weight decreased [Recovering/Resolving]
  - Administration site wound [Not Recovered/Not Resolved]
  - Infusion site inflammation [Not Recovered/Not Resolved]
  - Infusion site inflammation [Not Recovered/Not Resolved]
  - Dehydration [Recovering/Resolving]
  - Administration site indentation [Not Recovered/Not Resolved]

NARRATIVE: CASE EVENT DATE: 20240101
